FAERS Safety Report 11102642 (Version 2)
Quarter: 2015Q3

REPORT INFORMATION
  Report Type: Spontaneous
  Country: GB (occurrence: GB)
  Receive Date: 20150511
  Receipt Date: 20150723
  Transmission Date: 20151125
  Serious: Yes (Other)
  Sender: FDA-Public Use
  Company Number: GB-JNJFOC-20150103796

PATIENT
  Age: 46 Year
  Sex: Female

DRUGS (8)
  1. OVEX [Suspect]
     Active Substance: MEBENDAZOLE
     Indication: ENTEROBIASIS
     Dosage: FOR A SHORT TIME.
     Route: 048
     Dates: start: 201304
  2. OVEX [Suspect]
     Active Substance: MEBENDAZOLE
     Indication: ENTEROBIASIS
     Dosage: FOR A SHORT TIME.
     Route: 048
  3. LEVOTHYROXINE. [Concomitant]
     Active Substance: LEVOTHYROXINE
     Route: 065
  4. OVEX [Suspect]
     Active Substance: MEBENDAZOLE
     Indication: ENTEROBIASIS
     Dosage: FOR A SHORT TIME.
     Route: 048
     Dates: start: 201304
  5. OVEX [Suspect]
     Active Substance: MEBENDAZOLE
     Indication: ENTEROBIASIS
     Route: 048
     Dates: end: 201502
  6. OVEX [Suspect]
     Active Substance: MEBENDAZOLE
     Indication: ENTEROBIASIS
     Dosage: FOR 2-3 MONTHS.
     Route: 048
     Dates: end: 201502
  7. OVEX [Suspect]
     Active Substance: MEBENDAZOLE
     Indication: ENTEROBIASIS
     Dosage: FOR A SHORT TIME.
     Route: 048
  8. OVEX [Suspect]
     Active Substance: MEBENDAZOLE
     Indication: ENTEROBIASIS
     Dosage: FOR 2-3 MONTHS.
     Route: 048
     Dates: end: 20141225

REACTIONS (6)
  - Gallbladder disorder [Unknown]
  - Enterobiasis [Unknown]
  - Liver disorder [Unknown]
  - Cholelithiasis [Unknown]
  - Biliary neoplasm [Unknown]
  - Gastric disorder [Unknown]
